FAERS Safety Report 9564821 (Version 1)
Quarter: 2013Q3

REPORT INFORMATION
  Report Type: Spontaneous
  Country: US (occurrence: US)
  Receive Date: 20130930
  Receipt Date: 20130930
  Transmission Date: 20140515
  Serious: Yes (Other)
  Sender: FDA-Public Use
  Company Number: PHHY2013US108231

PATIENT
  Age: 55 Year
  Sex: Male

DRUGS (2)
  1. PAMIDRONATE [Suspect]
     Indication: PLASMA CELL MYELOMA
     Dosage: UNK UKN, UNK
  2. ZOLEDRONATE [Suspect]
     Indication: PLASMA CELL MYELOMA
     Dosage: UNK UKN, UNK

REACTIONS (2)
  - Osteonecrosis of jaw [Recovered/Resolved]
  - Exposed bone in jaw [Recovered/Resolved]
